FAERS Safety Report 12614173 (Version 2)
Quarter: 2016Q3

REPORT INFORMATION
  Report Type: Spontaneous
  Country: US (occurrence: US)
  Receive Date: 20160802
  Receipt Date: 20160817
  Transmission Date: 20161109
  Serious: Yes (Other)
  Sender: FDA-Public Use
  Company Number: US-PFIZER INC-2016368235

PATIENT
  Age: 60 Year
  Sex: Female
  Weight: 48 kg

DRUGS (2)
  1. PREMARIN [Suspect]
     Active Substance: ESTROGENS, CONJUGATED
     Dosage: UNK
  2. PREMARIN [Suspect]
     Active Substance: ESTROGENS, CONJUGATED
     Indication: VULVOVAGINAL DRYNESS
     Dosage: UP TO THE 0.5 MARK, CYCLIC (UP TO THREE TIMES A WEEK)
     Route: 067
     Dates: start: 2015

REACTIONS (4)
  - Expired product administered [Unknown]
  - Plantar fascial fibromatosis [Not Recovered/Not Resolved]
  - Malaise [Unknown]
  - Stress [Unknown]

NARRATIVE: CASE EVENT DATE: 201607
